FAERS Safety Report 13574715 (Version 1)
Quarter: 2017Q2

REPORT INFORMATION
  Report Type: Spontaneous
  Country: TR (occurrence: TR)
  Receive Date: 20170523
  Receipt Date: 20170523
  Transmission Date: 20170830
  Serious: Yes (Other)
  Sender: FDA-Public Use
  Company Number: ALCN2017TR003399

PATIENT
  Age: 4 Year
  Sex: Male
  Weight: 18.1 kg

DRUGS (1)
  1. FLAREX [Suspect]
     Active Substance: FLUOROMETHOLONE ACETATE
     Indication: CONJUNCTIVITIS ALLERGIC
     Dosage: 1 GTT, TID
     Route: 061
     Dates: start: 201504

REACTIONS (2)
  - Weight increased [Recovered/Resolved]
  - Cushing^s syndrome [Recovered/Resolved]

NARRATIVE: CASE EVENT DATE: 20150520
